FAERS Safety Report 6101026-2 (Version None)
Quarter: 2009Q1

REPORT INFORMATION
  Report Type: 
  Country: None (occurrence: None)
  Receive Date: 20090227
  Receipt Date: 20090213
  Transmission Date: 20090719
  Serious: Yes (Hospitalization)
  Sender: FDA-Public Use
  Company Number: 8043061

PATIENT
  Age: 28 Year
  Sex: Female

DRUGS (8)
  1. KEPPRA [Suspect]
     Indication: EPILEPSY
     Dosage: 1250 MG /D PO
     Route: 048
     Dates: start: 20070901, end: 20090101
  2. KEPPRA [Suspect]
     Indication: EPILEPSY
     Dosage: 2000 MCG /D PO
     Route: 048
     Dates: start: 20090211
  3. KEPPRA XR [Suspect]
     Indication: EPILEPSY
     Dosage: 2000 MG /D PO
     Route: 048
     Dates: start: 20090101, end: 20090211
  4. KEPPRA XR [Suspect]
     Indication: EPILEPSY
     Dosage: 2500 MG /D PO
     Route: 048
     Dates: start: 20090211
  5. FOLIC ACID [Concomitant]
  6. VITAMIN TAB [Concomitant]
  7. REPLIVA (IRON) [Concomitant]
  8. CALCIUM [Concomitant]

REACTIONS (4)
  - DRUG EXPOSURE DURING PREGNANCY [None]
  - HAEMOGLOBIN DECREASED [None]
  - SYNCOPE [None]
  - VITAMIN B12 DECREASED [None]
